FAERS Safety Report 7017723-0 (Version None)
Quarter: 2010Q3

REPORT INFORMATION
  Report Type: 
  Country: None (occurrence: None)
  Receive Date: 20100928
  Receipt Date: 20100916
  Transmission Date: 20110219
  Serious: Yes (Death, Hospitalization)
  Sender: FDA-Public Use
  Company Number: FR-JNJFOC-20100704480

PATIENT
  Age: 58 Year
  Sex: Male

DRUGS (3)
  1. REMICADE [Suspect]
     Indication: CROHN'S DISEASE
     Route: 042
  2. REMICADE [Suspect]
     Route: 042
  3. REMICADE [Suspect]
     Route: 042

REACTIONS (17)
  - ANURIA [None]
  - ASPERGILLOSIS [None]
  - CANDIDA SEPSIS [None]
  - CIRRHOSIS ALCOHOLIC [None]
  - DEVICE RELATED INFECTION [None]
  - HEPATITIS ALCOHOLIC [None]
  - HEPATITIS B [None]
  - HYPOTENSION [None]
  - LACTIC ACIDOSIS [None]
  - LOWER RESPIRATORY TRACT INFECTION [None]
  - METABOLIC ACIDOSIS [None]
  - MULTI-ORGAN FAILURE [None]
  - RENAL TUBULAR NECROSIS [None]
  - RESPIRATORY FAILURE [None]
  - SEPSIS [None]
  - SEPTIC SHOCK [None]
  - URINARY TRACT INFECTION [None]
